FAERS Safety Report 4903315-3 (Version None)
Quarter: 2006Q1

REPORT INFORMATION
  Report Type: 
  Country: None (occurrence: None)
  Receive Date: 20060206
  Receipt Date: 20060206
  Transmission Date: 20060701
  Serious: No
  Sender: FDA-Public Use
  Company Number: None

PATIENT
  Age: 40 Year
  Sex: Female
  Weight: 57.6068 kg

DRUGS (2)
  1. BC PAIN RELIEF ARTHRITIS STRENGTH GLAXOSMITHKLINE [Suspect]
     Indication: HEADACHE
     Dates: start: 20060204, end: 20060204
  2. GOODYS PM FORMULA SLEEP AID GLAXOSMITHKLINE [Suspect]

REACTIONS (4)
  - DISTURBANCE IN ATTENTION [None]
  - PHARMACEUTICAL PRODUCT COMPLAINT [None]
  - SOMNOLENCE [None]
  - VISION BLURRED [None]
